FAERS Safety Report 5375053-7 (Version None)
Quarter: 2007Q2

REPORT INFORMATION
  Report Type: 
  Country: None (occurrence: None)
  Receive Date: 20070629
  Receipt Date: 20070402
  Transmission Date: 20071010
  Serious: No
  Sender: FDA-Public Use
  Company Number: A0645600A

PATIENT
  Age: 61 Year
  Sex: Female

DRUGS (11)
  1. AVANDARYL [Suspect]
     Dosage: 1TAB PER DAY
     Route: 048
     Dates: start: 20060701, end: 20061001
  2. COREG [Suspect]
     Indication: LEFT VENTRICULAR DYSFUNCTION
     Dosage: 25MG TWICE PER DAY
     Route: 048
     Dates: start: 20060501
  3. ACCUPRIL [Concomitant]
  4. ZETIA [Concomitant]
  5. PLAVIX [Concomitant]
  6. TRICOR [Concomitant]
  7. ASPIRIN [Concomitant]
  8. OMACOR [Concomitant]
  9. NOVOLOG [Concomitant]
  10. ACTOS [Concomitant]
  11. LIPITOR [Concomitant]

REACTIONS (4)
  - DRUG INEFFECTIVE [None]
  - DYSPNOEA EXERTIONAL [None]
  - FATIGUE [None]
  - WEIGHT INCREASED [None]
